FAERS Safety Report 8591916-3 (Version None)
Quarter: 2012Q3

REPORT INFORMATION
  Report Type: 
  Country: None (occurrence: None)
  Receive Date: 20120814
  Receipt Date: 20120806
  Transmission Date: 20120928
  Serious: Yes (Other)
  Sender: FDA-Public Use
  Company Number: US-GENZYME-POMP-1002323

PATIENT
  Sex: Female

DRUGS (9)
  1. LUMIZYME [Suspect]
     Indication: GLYCOGEN STORAGE DISEASE TYPE II
     Dosage: 20 MG/KG, Q2W
     Route: 042
     Dates: start: 20060601
  2. ALLEGRA [Concomitant]
     Indication: PREMEDICATION
     Dosage: 25 MG, Q2W
     Route: 048
  3. BENADRYL [Concomitant]
     Indication: PRURITUS
  4. BENADRYL [Concomitant]
     Indication: RASH GENERALISED
  5. BENADRYL [Concomitant]
     Indication: GENERALISED ERYTHEMA
  6. NEXIUM [Concomitant]
     Indication: PREMEDICATION
     Dosage: 40 MG, BID
     Route: 048
  7. BENADRYL [Concomitant]
     Indication: PREMEDICATION
     Dosage: 25 MG, UNK
     Route: 042
  8. BENADRYL [Concomitant]
     Indication: URTICARIA
  9. BENADRYL [Concomitant]
     Indication: SKIN LESION

REACTIONS (8)
  - GASTROOESOPHAGEAL REFLUX DISEASE [None]
  - SENSORY DISTURBANCE [None]
  - URTICARIA [None]
  - RASH GENERALISED [None]
  - GENERALISED ERYTHEMA [None]
  - PRURITUS [None]
  - SKIN LESION [None]
  - THROAT IRRITATION [None]
